FAERS Safety Report 24710293 (Version 1)
Quarter: 2024Q4

REPORT INFORMATION
  Report Type: Spontaneous
  Country: DE (occurrence: DE)
  Receive Date: 20241209
  Receipt Date: 20241209
  Transmission Date: 20250115
  Serious: Yes (Other)
  Sender: ROCHE
  Company Number: None

PATIENT
  Age: 25 Year
  Sex: Male

DRUGS (7)
  1. MYCOPHENOLATE MOFETIL [Suspect]
     Active Substance: MYCOPHENOLATE MOFETIL
     Indication: Prophylaxis
     Route: 065
  2. METHYLPREDNISOLONE [Suspect]
     Active Substance: METHYLPREDNISOLONE
     Indication: Acute graft versus host disease in eye
     Route: 065
  3. THYMOCYTE IMMUNE GLOBULIN NOS [Suspect]
     Active Substance: THYMOCYTE IMMUNE GLOBULIN NOS
     Indication: Prophylaxis
     Route: 065
  4. CYCLOSPORINE [Suspect]
     Active Substance: CYCLOSPORINE
     Indication: Prophylaxis
     Route: 065
  5. FINGOLIMOD [Concomitant]
     Active Substance: FINGOLIMOD
     Indication: Viraemia
     Route: 065
  6. BELUMOSUDIL [Concomitant]
     Active Substance: BELUMOSUDIL
     Indication: Encephalitis
     Route: 065
  7. AXATILIMAB [Concomitant]
     Active Substance: AXATILIMAB
     Indication: Encephalitis
     Dosage: EVERY 2ND WEEK
     Route: 065

REACTIONS (5)
  - Rebound effect [Unknown]
  - Disorientation [Unknown]
  - Seizure [Unknown]
  - Retrograde amnesia [Unknown]
  - Drug ineffective [Unknown]
